FAERS Safety Report 14544559 (Version 2)
Quarter: 2018Q1

REPORT INFORMATION
  Report Type: Report from Study
  Country: FR (occurrence: FR)
  Receive Date: 20180217
  Receipt Date: 20180223
  Transmission Date: 20180509
  Serious: Yes (Hospitalization)
  Sender: FDA-Public Use
  Company Number: FR-ROCHE-1303983

PATIENT
  Age: 67 Year
  Sex: Male
  Weight: 96 kg

DRUGS (20)
  1. ATEZOLIZUMAB. [Suspect]
     Active Substance: ATEZOLIZUMAB
     Indication: HAEMATOLOGICAL MALIGNANCY
  2. DUROGESIC [Concomitant]
     Active Substance: FENTANYL
     Indication: MUSCULOSKELETAL CHEST PAIN
     Route: 048
     Dates: start: 20131017
  3. SKENAN [Concomitant]
     Active Substance: MORPHINE SULFATE
     Route: 048
     Dates: start: 20131118
  4. SKENAN [Concomitant]
     Active Substance: MORPHINE SULFATE
     Indication: CHEST PAIN
     Route: 048
     Dates: start: 20131002, end: 20131109
  5. SKENAN [Concomitant]
     Active Substance: MORPHINE SULFATE
     Dosage: ACTISKENAN
     Route: 048
     Dates: start: 20131002
  6. PARACETAMOL [Concomitant]
     Active Substance: ACETAMINOPHEN
     Indication: CHEST PAIN
     Route: 048
     Dates: start: 201310
  7. LEXOMIL [Concomitant]
     Active Substance: BROMAZEPAM
     Indication: SLEEP DISORDER
     Route: 048
     Dates: start: 20131001
  8. AVLOCARDYL [Concomitant]
     Active Substance: PROPRANOLOL HYDROCHLORIDE
     Indication: FACIAL NEURALGIA
     Route: 048
     Dates: start: 1998
  9. OMEPRAZOLE. [Concomitant]
     Active Substance: OMEPRAZOLE
     Indication: PROPHYLAXIS
     Route: 048
     Dates: start: 2011
  10. FORLAX [Concomitant]
     Active Substance: POLYETHYLENE GLYCOL 4000
     Indication: CONSTIPATION PROPHYLAXIS
     Route: 048
     Dates: start: 20131002, end: 20131230
  11. OMEPRAZOLE SODIUM [Concomitant]
     Active Substance: OMEPRAZOLE SODIUM
     Route: 065
  12. OXYCONTIN [Concomitant]
     Active Substance: OXYCODONE HYDROCHLORIDE
     Indication: CHEST PAIN
     Route: 048
     Dates: start: 20131109, end: 20131118
  13. UVEDOSE [Concomitant]
     Active Substance: CHOLECALCIFEROL
     Indication: PROPHYLAXIS
     Dosage: 1 AMPULE
     Route: 048
  14. ACTISKENAN [Concomitant]
     Active Substance: MORPHINE SULFATE
     Indication: CHEST PAIN
     Route: 048
     Dates: start: 20131002, end: 20131109
  15. LEVOTHYROX [Concomitant]
     Active Substance: LEVOTHYROXINE
     Indication: PROPHYLAXIS
     Dosage: INDICATION: PROPHYLAXIA THYROIDIEN NODULE.
     Route: 048
     Dates: start: 2009
  16. UVEDOSE [Concomitant]
     Active Substance: CHOLECALCIFEROL
     Indication: VITAMIN D DEFICIENCY
  17. LEXOMIL [Concomitant]
     Active Substance: BROMAZEPAM
     Indication: INSOMNIA
  18. OXYGEN. [Concomitant]
     Active Substance: OXYGEN
     Indication: DYSPNOEA
     Route: 050
     Dates: start: 20140110, end: 20140115
  19. ATEZOLIZUMAB. [Suspect]
     Active Substance: ATEZOLIZUMAB
     Indication: NEOPLASM
     Dosage: DATE OF LAST DOSE (1500MG) PRIOR TO HYPERTHERMIA ONSET: 28/OCT/2013. ?DATE OF LAST DOSE (1530MG) PRI
     Route: 042
     Dates: start: 20131028
  20. OXYNORM [Concomitant]
     Active Substance: OXYCODONE HYDROCHLORIDE
     Indication: CHEST PAIN
     Route: 048
     Dates: start: 20131109, end: 20131118

REACTIONS (2)
  - Hyperthermia [Recovered/Resolved]
  - Pneumothorax [Not Recovered/Not Resolved]

NARRATIVE: CASE EVENT DATE: 20131109
